FAERS Safety Report 6150583-9 (Version None)
Quarter: 2009Q2

REPORT INFORMATION
  Report Type: 
  Country: None (occurrence: None)
  Receive Date: 20090409
  Receipt Date: 20090331
  Transmission Date: 20091009
  Serious: Yes (Hospitalization)
  Sender: FDA-Public Use
  Company Number: AT-ELI_LILLY_AND_COMPANY-AT200902006402

PATIENT
  Age: 15 Year
  Sex: Male

DRUGS (1)
  1. STRATTERA [Suspect]
     Indication: ATTENTION DEFICIT/HYPERACTIVITY DISORDER
     Dosage: 40 MG, DAILY (1/D)
     Route: 048
     Dates: start: 20081201, end: 20090101

REACTIONS (4)
  - AGGRESSION [None]
  - DEPRESSION [None]
  - DYSPHORIA [None]
  - SUICIDAL IDEATION [None]
